FAERS Safety Report 15531476 (Version 2)
Quarter: 2018Q4

REPORT INFORMATION
  Report Type: Report from Study
  Country: US (occurrence: US)
  Receive Date: 20181019
  Receipt Date: 20181203
  Transmission Date: 20190205
  Serious: Yes (Hospitalization, Other)
  Sender: FDA-Public Use
  Company Number: US-BRISTOL-MYERS SQUIBB COMPANY-BMS-2018-091196

PATIENT
  Age: 70 Year
  Sex: Female
  Weight: 47.8 kg

DRUGS (3)
  1. NIVOLUMAB [Suspect]
     Active Substance: NIVOLUMAB
     Indication: CHOLANGIOCARCINOMA
     Dosage: 360 MG, Q3WK
     Route: 042
     Dates: start: 20180416, end: 20180904
  2. GEMCITABINE HYDROCHLORIDE. [Suspect]
     Active Substance: GEMCITABINE HYDROCHLORIDE
     Indication: CHOLANGIOCARCINOMA
     Dosage: 1000 MG/M2, Q3WK
     Route: 042
     Dates: start: 20180416, end: 20180806
  3. CISPLATIN. [Suspect]
     Active Substance: CISPLATIN
     Indication: CHOLANGIOCARCINOMA
     Dosage: 25 MG/M2, Q3WK
     Route: 042
     Dates: start: 20180416, end: 20180806

REACTIONS (4)
  - Hepatitis [Recovered/Resolved]
  - Bacteraemia [Recovered/Resolved]
  - Escherichia test positive [Unknown]
  - Gram stain positive [Unknown]

NARRATIVE: CASE EVENT DATE: 20180927
